FAERS Safety Report 23114866 (Version 1)
Quarter: 2023Q4

REPORT INFORMATION
  Report Type: Spontaneous
  Country: US (occurrence: US)
  Receive Date: 20231027
  Receipt Date: 20231027
  Transmission Date: 20240109
  Serious: No
  Sender: FDA-Public Use
  Company Number: US-BRISTOL-MYERS SQUIBB COMPANY-2023-149965

PATIENT
  Age: 81 Year
  Sex: Male

DRUGS (1)
  1. POMALYST [Suspect]
     Active Substance: POMALIDOMIDE
     Indication: End stage renal disease
     Route: 048
     Dates: start: 20190528

REACTIONS (11)
  - Fatigue [Unknown]
  - Tongue disorder [Unknown]
  - Decreased appetite [Unknown]
  - Insomnia [Unknown]
  - Dyspnoea [Unknown]
  - Depression [Unknown]
  - Nervousness [Unknown]
  - Anxiety [Unknown]
  - Psychiatric symptom [Unknown]
  - Off label use [Unknown]
  - Product storage error [Unknown]
